FAERS Safety Report 6407812-3 (Version None)
Quarter: 2009Q4

REPORT INFORMATION
  Report Type: 
  Country: None (occurrence: None)
  Receive Date: 20091015
  Receipt Date: 20091001
  Transmission Date: 20100525
  Serious: Yes (Other)
  Sender: FDA-Public Use
  Company Number: 8052883

PATIENT
  Sex: 0

DRUGS (3)
  1. LEVETIRACETAM [Suspect]
     Indication: EPILEPSY
     Dosage: 5 MG/KG 2/D PO
     Route: 048
  2. LEVETIRACETAM [Suspect]
     Indication: EPILEPSY
     Dosage: PO A FEW WEEKS
     Route: 048
  3. LEVETIRACETAM [Suspect]
     Indication: EPILEPSY
     Dosage: 32.5 MG/KG 2/D PO
     Route: 048

REACTIONS (2)
  - DIPLOPIA [None]
  - SPEECH DISORDER [None]
